FAERS Safety Report 8992211 (Version 1)
Quarter: 2012Q4

REPORT INFORMATION
  Report Type: 
  Country: CO (occurrence: CO)
  Receive Date: 20121231
  Receipt Date: 20121231
  Transmission Date: 20130627
  Serious: Yes (Life-Threatening)
  Sender: FDA-Public Use
  Company Number: CO-CELGENEUS-036-21880-12123143

PATIENT
  Age: 70 Year
  Sex: Male

DRUGS (3)
  1. REVLIMID [Suspect]
     Indication: MULTIPLE MYELOMA
     Dosage: 5 Milligram
     Route: 048
     Dates: start: 20121119, end: 20121210
  2. SITALGLIPTINA [Concomitant]
     Indication: DIABETES
     Dosage: 100 Milligram
     Route: 048
     Dates: start: 2002
  3. ESOMEPRAZOLE [Concomitant]
     Indication: GASTRITIS
     Dosage: 40 Milligram
     Route: 048
     Dates: start: 2002

REACTIONS (1)
  - Skin reaction [Recovered/Resolved]
